FAERS Safety Report 4876863-2 (Version None)
Quarter: 2005Q4

REPORT INFORMATION
  Report Type: 
  Country: None (occurrence: None)
  Receive Date: 20051206
  Receipt Date: 20051011
  Transmission Date: 20060501
  Serious: No
  Sender: FDA-Public Use
  Company Number: USA0508104279

PATIENT
  Age: 41 Year
  Sex: Female
  Weight: 70 kg

DRUGS (8)
  1. CYMBALTA [Suspect]
     Indication: PAIN
     Dosage: 60 MG
     Dates: start: 20050101
  2. DURAGESIC-100 [Concomitant]
  3. CELEBREX [Concomitant]
  4. PROTONIX [Concomitant]
  5. ELETRIPTAN [Concomitant]
  6. ACETAMINOPHEN AND HYDROCODONE BITARTRATE [Concomitant]
  7. LEVOXYL [Concomitant]
  8. PROVIGIL [Concomitant]

REACTIONS (1)
  - DYSTONIA [None]
